FAERS Safety Report 4768408-2 (Version None)
Quarter: 2005Q3

REPORT INFORMATION
  Report Type: 
  Country: None (occurrence: None)
  Receive Date: 20050906
  Receipt Date: 20050517
  Transmission Date: 20060218
  Serious: No
  Sender: FDA-Public Use
  Company Number: 2005-BP-05628BP

PATIENT
  Sex: Male

DRUGS (15)
  1. SPIRIVA [Suspect]
     Indication: DYSPNOEA
     Dosage: 18 MCG (18 MCG, QD), IH
     Route: 055
     Dates: start: 20050308
  2. LOVASTATIN [Concomitant]
  3. CAPOTEN [Concomitant]
  4. HYDROCHLOROTHIAZIDE [Concomitant]
  5. NORVASC [Concomitant]
  6. IMDUR [Concomitant]
  7. TENORMIN [Concomitant]
  8. GLYBURIDE [Concomitant]
  9. GLUCOPHAGE [Concomitant]
  10. AVANDIA [Concomitant]
  11. VITAMIN E [Concomitant]
  12. ACETYLSALICYLIC ACID SRT [Concomitant]
  13. ALBUTEROL [Concomitant]
  14. ADVAIR DISKUS 100/50 [Concomitant]
  15. DIABETA [Concomitant]

REACTIONS (1)
  - DRUG INEFFECTIVE [None]
